FAERS Safety Report 16845987 (Version 1)
Quarter: 2019Q3

REPORT INFORMATION
  Report Type: Spontaneous
  Country: US (occurrence: US)
  Receive Date: 20190924
  Receipt Date: 20190924
  Transmission Date: 20191005
  Serious: No
  Sender: FDA-Public Use
  Company Number: US-MAYNE PHARMA-2018MYN001475

PATIENT

DRUGS (2)
  1. ADHESIVE OVERLAY PATCH [Concomitant]
     Indication: ADHESIVE TAPE USE
     Dosage: UNK
     Dates: start: 201810
  2. CLONIDINE. [Suspect]
     Active Substance: CLONIDINE
     Indication: HOT FLUSH
     Dosage: 0.1 MG, QD
     Route: 062
     Dates: start: 201810

REACTIONS (2)
  - Off label use [Unknown]
  - Product adhesion issue [Unknown]

NARRATIVE: CASE EVENT DATE: 201810
